FAERS Safety Report 13495338 (Version 2)
Quarter: 2017Q2

REPORT INFORMATION
  Report Type: Spontaneous
  Country: US (occurrence: US)
  Receive Date: 20170428
  Receipt Date: 20170523
  Transmission Date: 20170830
  Serious: Yes (Other)
  Sender: FDA-Public Use
  Company Number: US-ASTELLAS-2017US007326

PATIENT
  Age: 73 Year
  Sex: Male

DRUGS (1)
  1. XTANDI [Suspect]
     Active Substance: ENZALUTAMIDE
     Indication: PROSTATE CANCER
     Route: 048
     Dates: start: 20170118

REACTIONS (12)
  - Eye disorder [Unknown]
  - Constipation [Unknown]
  - Knee operation [Unknown]
  - Hypoacusis [Unknown]
  - Arthralgia [Not Recovered/Not Resolved]
  - Myalgia [Unknown]
  - Underdose [Unknown]
  - Decreased appetite [Unknown]
  - Musculoskeletal stiffness [Unknown]
  - Insomnia [Unknown]
  - Memory impairment [Unknown]
  - Head discomfort [Unknown]

NARRATIVE: CASE EVENT DATE: 201702
